FAERS Safety Report 18316007 (Version 1)
Quarter: 2020Q3

REPORT INFORMATION
  Report Type: Spontaneous
  Country: GB (occurrence: GB)
  Receive Date: 20200927
  Receipt Date: 20200927
  Transmission Date: 20201103
  Serious: Yes (Disabling, Other)
  Sender: FDA-Public Use
  Company Number: GB-TEVA-2020-GB-1831460

PATIENT
  Age: 38 Year
  Sex: Male

DRUGS (2)
  1. PALIPERIDONE. [Suspect]
     Active Substance: PALIPERIDONE
     Indication: SCHIZOPHRENIA
     Route: 051
  2. PROCYCLIDINE [Concomitant]
     Active Substance: PROCYCLIDINE

REACTIONS (5)
  - Tinnitus [Unknown]
  - Deafness [Unknown]
  - Muscular weakness [Not Recovered/Not Resolved]
  - Atonic seizures [Not Recovered/Not Resolved]
  - Fatigue [Not Recovered/Not Resolved]
